FAERS Safety Report 18596732 (Version 1)
Quarter: 2020Q4

REPORT INFORMATION
  Report Type: Spontaneous
  Country: US (occurrence: US)
  Receive Date: 20201209
  Receipt Date: 20201209
  Transmission Date: 20210114
  Serious: No
  Sender: FDA-Public Use
  Company Number: US-FAGRON STERILE SERVICES-2101791

PATIENT

DRUGS (1)
  1. SUCCINYLCHOLINE CHLORIDE 20MG/ML INJ (API) 10ML [Suspect]
     Active Substance: SUCCINYLCHOLINE CHLORIDE
     Dates: start: 20201120

REACTIONS (1)
  - Drug ineffective [None]
